FAERS Safety Report 12008035 (Version 3)
Quarter: 2016Q1

REPORT INFORMATION
  Report Type: Spontaneous
  Country: CH (occurrence: CH)
  Receive Date: 20160205
  Receipt Date: 20160209
  Transmission Date: 20160526
  Serious: Yes (Other)
  Sender: FDA-Public Use
  Company Number: CH-009507513-1602CHE000663

PATIENT
  Age: 83 Year
  Sex: Male
  Weight: 67 kg

DRUGS (7)
  1. NOVALGIN (DIPYRONE) [Concomitant]
     Active Substance: DIPYRONE
     Dosage: UNK
  2. KEYTRUDA [Suspect]
     Active Substance: PEMBROLIZUMAB
     Indication: MESOTHELIOMA
     Dosage: UNK, QOW
     Route: 042
     Dates: start: 20151215
  3. IRFEN [Concomitant]
     Active Substance: IBUPROFEN
     Dosage: UNK
  4. ZESTRIL [Concomitant]
     Active Substance: LISINOPRIL
     Dosage: UNK
  5. FINASTERIDE. [Concomitant]
     Active Substance: FINASTERIDE
     Dosage: UNK
  6. PANTOPRAZOLE [Concomitant]
     Active Substance: PANTOPRAZOLE SODIUM
     Dosage: UNK
  7. CIPRALEX [Concomitant]
     Active Substance: ESCITALOPRAM OXALATE
     Dosage: UNK

REACTIONS (4)
  - Myalgia [Recovering/Resolving]
  - Headache [Recovering/Resolving]
  - Arthralgia [Unknown]
  - Blood pressure abnormal [Unknown]

NARRATIVE: CASE EVENT DATE: 20151222
